FAERS Safety Report 25963424 (Version 1)
Quarter: 2025Q4

REPORT INFORMATION
  Report Type: Report from Study
  Country: US (occurrence: US)
  Receive Date: 20251027
  Receipt Date: 20251027
  Transmission Date: 20260119
  Serious: Yes (Other)
  Sender: ABBVIE
  Company Number: US-ABBVIE-6514089

PATIENT
  Age: 37 Year
  Sex: Male

DRUGS (1)
  1. RINVOQ [Suspect]
     Active Substance: UPADACITINIB
     Indication: Product used for unknown indication
     Route: 048
     Dates: start: 20230404, end: 2025

REACTIONS (1)
  - Large intestinal haemorrhage [Not Recovered/Not Resolved]

NARRATIVE: CASE EVENT DATE: 20251021
